FAERS Safety Report 23155075 (Version 1)
Quarter: 2023Q4

REPORT INFORMATION
  Report Type: Spontaneous
  Country: GB (occurrence: GB)
  Receive Date: 20231107
  Receipt Date: 20231107
  Transmission Date: 20240110
  Serious: Yes (Other)
  Sender: FDA-Public Use
  Company Number: None

PATIENT
  Age: 53 Year
  Sex: Male
  Weight: 92 kg

DRUGS (6)
  1. ATORVASTATIN [Suspect]
     Active Substance: ATORVASTATIN
     Indication: Product used for unknown indication
     Dosage: 80MG ONCE A FAY; ;
     Route: 065
     Dates: start: 20231021
  2. AMIODARONE [Concomitant]
     Active Substance: AMIODARONE
     Indication: Adverse drug reaction
     Route: 065
     Dates: start: 20230924
  3. AMLODIPINE [Concomitant]
     Active Substance: AMLODIPINE BESYLATE
     Indication: Myocardial infarction
     Route: 065
     Dates: start: 20230924
  4. APIXABAN [Concomitant]
     Active Substance: APIXABAN
     Indication: Myocardial infarction
     Route: 065
     Dates: start: 20230924
  5. ASPIRIN [Concomitant]
     Active Substance: ASPIRIN
     Indication: Myocardial infarction
     Route: 065
     Dates: start: 20230924
  6. LANSOPRAZOLE [Concomitant]
     Active Substance: LANSOPRAZOLE
     Indication: Myocardial infarction
     Route: 065
     Dates: start: 20230924

REACTIONS (1)
  - Akathisia [Not Recovered/Not Resolved]

NARRATIVE: CASE EVENT DATE: 20231024
